FAERS Safety Report 5160039-8 (Version None)
Quarter: 2006Q4

REPORT INFORMATION
  Report Type: 
  Country: None (occurrence: None)
  Receive Date: 20061129
  Receipt Date: 20060731
  Transmission Date: 20070319
  Serious: Yes (Hospitalization)
  Sender: FDA-Public Use
  Company Number: US-GLAXOSMITHKLINE-A0614171A

PATIENT
  Age: 42 Year
  Sex: Female
  Weight: 47.7 kg

DRUGS (3)
  1. WELLBUTRIN SR [Suspect]
     Indication: DEPRESSION
     Dosage: 150MG TWICE PER DAY
     Route: 048
     Dates: start: 20020301, end: 20060723
  2. CELEXA [Concomitant]
     Indication: DEPRESSION
  3. XANAX [Concomitant]
     Dosage: .5MG AS REQUIRED

REACTIONS (3)
  - GRAND MAL CONVULSION [None]
  - MUSCLE TWITCHING [None]
  - TONGUE BITING [None]
